FAERS Safety Report 8177269-3 (Version None)
Quarter: 2012Q1

REPORT INFORMATION
  Report Type: 
  Country: None (occurrence: None)
  Receive Date: 20120301
  Receipt Date: 20120221
  Transmission Date: 20120608
  Serious: Yes (Death, Hospitalization, Other)
  Sender: FDA-Public Use
  Company Number: JP-ALEXION-A201001538

PATIENT
  Sex: Male

DRUGS (2)
  1. BLOOD AND RELATED PRODUCTS [Concomitant]
  2. SOLIRIS [Suspect]
     Indication: PAROXYSMAL NOCTURNAL HAEMOGLOBINURIA
     Dosage: 900 MG, Q2W
     Route: 042
     Dates: start: 20100623, end: 20101027

REACTIONS (13)
  - NEPHROSCLEROSIS [None]
  - FALL [None]
  - LOSS OF CONSCIOUSNESS [None]
  - AORTIC ARTERIOSCLEROSIS [None]
  - CEREBRAL HAEMORRHAGE [None]
  - HYPOXIC-ISCHAEMIC ENCEPHALOPATHY [None]
  - TESTICULAR ATROPHY [None]
  - MENINGITIS TUBERCULOUS [None]
  - BRAIN CONTUSION [None]
  - EXTRADURAL HAEMATOMA [None]
  - DISSEMINATED TUBERCULOSIS [None]
  - PROSTATE CANCER [None]
  - PNEUMONIA ASPIRATION [None]
